FAERS Safety Report 7994535-2 (Version None)
Quarter: 2011Q4

REPORT INFORMATION
  Report Type: 
  Country: None (occurrence: None)
  Receive Date: 20111220
  Receipt Date: 20080721
  Transmission Date: 20120403
  Serious: Yes (Disabling, Other)
  Sender: FDA-Public Use
  Company Number: US-BAYER-200821200NA

PATIENT
  Sex: Female
  Weight: 52.2 kg

DRUGS (43)
  1. GADOLINIUM IN UNSPECIFIED DRUG [Suspect]
     Dosage: UNK, ONCE
     Dates: start: 20050127, end: 20050127
  2. RESTASIS [Concomitant]
     Dosage: UNK
  3. NU-IRON [Concomitant]
  4. LOPRESSOR [Concomitant]
  5. MYCOPHENOLATE MOFETIL (CELLCEPT) [Concomitant]
  6. AMLODIPINE BESYLATE [Concomitant]
  7. RENAGEL [Concomitant]
  8. DIATX [Concomitant]
  9. PROCARDIA XL [Concomitant]
  10. PANCREASE [Concomitant]
  11. LYRICA [Concomitant]
  12. ZELNORM [Concomitant]
  13. MAGNEVIST [Suspect]
     Indication: NUCLEAR MAGNETIC RESONANCE IMAGING ABDOMINAL
     Dates: start: 20050516, end: 20050516
  14. MAGNEVIST [Suspect]
  15. GADOLINIUM IN UNSPECIFIED DRUG [Suspect]
     Indication: ANGIOGRAM
     Dosage: UNK, ONCE
     Dates: start: 20040701, end: 20040701
  16. EPOGEN [Concomitant]
  17. DILAUDID [Concomitant]
  18. MEDROL [Concomitant]
  19. THYMOGLOBULIN [Concomitant]
  20. MAGNEVIST [Suspect]
     Indication: ANGIOGRAM
     Dates: start: 20060914, end: 20060914
  21. GADOLINIUM IN UNSPECIFIED DRUG [Suspect]
     Indication: NUCLEAR MAGNETIC RESONANCE IMAGING
     Dosage: UNK UNK, ONCE
     Dates: start: 19981208, end: 19981208
  22. HUMALOG [Concomitant]
  23. DURAGESIC-100 [Concomitant]
  24. PROCRIT [Concomitant]
  25. NEORAL [Concomitant]
  26. RITUXIMAB [Concomitant]
  27. REGULAR INSULIN [Concomitant]
  28. MAGNEVIST [Suspect]
     Indication: NUCLEAR MAGNETIC RESONANCE IMAGING BRAIN
     Dates: start: 20070127, end: 20070127
  29. NEPHROCAPS [Concomitant]
  30. LIPITOR [Concomitant]
  31. METOPROLOL TARTRATE [Concomitant]
  32. NPH INSULIN [Concomitant]
  33. INDERAL LA [Concomitant]
  34. PROGRAF [Concomitant]
  35. CLONIDINE [Concomitant]
  36. IMURAN [Concomitant]
  37. VICODIN [Concomitant]
  38. INTERFERON [Concomitant]
  39. PHOSLO [Concomitant]
  40. FUROSEMIDE [Concomitant]
     Dosage: 80 MG, BID
     Route: 048
     Dates: start: 20061122
  41. MINOXIDIL [Concomitant]
  42. COUMADIN [Concomitant]
  43. HEPARIN [Concomitant]

REACTIONS (18)
  - ARTHROPATHY [None]
  - SKIN INDURATION [None]
  - EXTREMITY CONTRACTURE [None]
  - BLINDNESS [None]
  - OEDEMA PERIPHERAL [None]
  - SKIN HYPERTROPHY [None]
  - RASH MACULO-PAPULAR [None]
  - DRY SKIN [None]
  - SCAR [None]
  - DEAFNESS [None]
  - ANHEDONIA [None]
  - MOBILITY DECREASED [None]
  - ANXIETY [None]
  - PAIN [None]
  - NEPHROGENIC SYSTEMIC FIBROSIS [None]
  - INJURY [None]
  - ERYTHEMA [None]
  - SKIN EXFOLIATION [None]
